FAERS Safety Report 7188296-7 (Version None)
Quarter: 2010Q4

REPORT INFORMATION
  Report Type: 
  Country: None (occurrence: None)
  Receive Date: 20101222
  Receipt Date: 20100715
  Transmission Date: 20110411
  Serious: No
  Sender: FDA-Public Use
  Company Number: US-AMGEN-KDL424572

PATIENT

DRUGS (7)
  1. ENBREL [Suspect]
     Indication: PRODUCT USED FOR UNKNOWN INDICATION
     Dosage: 50 MG, QWK
     Route: 058
  2. METHOTREXATE [Concomitant]
     Dosage: 2.5 MG, UNK
     Route: 048
  3. TOCOPHEROL CONCENTRATE CAP [Concomitant]
     Dosage: 400 IU, UNK
     Route: 048
  4. ASCORBIC ACID [Concomitant]
     Dosage: 500 MG, UNK
     Route: 048
  5. ESCITALOPRAM OXALATE [Concomitant]
     Dosage: 5 MG, UNK
     Route: 048
  6. LOVAZA [Concomitant]
     Dosage: 340 MG, UNK
     Route: 048
  7. MULTI-VITAMINS [Concomitant]
     Dosage: UNK UNK, UNK
     Route: 048

REACTIONS (1)
  - CONDITION AGGRAVATED [None]
